FAERS Safety Report 9916994 (Version 1)
Quarter: 2014Q1

REPORT INFORMATION
  Report Type: Spontaneous
  Country: US (occurrence: US)
  Receive Date: 20140221
  Receipt Date: 20140221
  Transmission Date: 20141002
  Serious: Yes (Death)
  Sender: FDA-Public Use
  Company Number: US-MYLANLABS-2014S1003201

PATIENT
  Age: 11 Year
  Sex: Female

DRUGS (9)
  1. KETAMINE [Suspect]
     Indication: ENDOTRACHEAL INTUBATION
     Route: 065
  2. ROCURONIUM BROMIDE [Concomitant]
     Indication: ENDOTRACHEAL INTUBATION
     Route: 065
  3. LEVOTHYROXINE SODIUM [Concomitant]
     Route: 065
  4. HYDROCORTISONE [Concomitant]
     Route: 065
  5. HYDROCORTISONE [Concomitant]
     Indication: PNEUMONIA
     Dosage: 100MG-1.6 MG/KG
     Route: 042
  6. CEFOTAXIME [Concomitant]
     Indication: PNEUMONIA
     Dosage: 2G
     Route: 042
  7. VANCOMYCIN [Concomitant]
     Indication: PNEUMONIA
     Dosage: 500MG
     Route: 042
  8. IBUPROFEN [Concomitant]
     Indication: PNEUMONIA
     Dosage: 600MG
     Route: 048
  9. DOPAMINE [Concomitant]
     Dosage: INFUSION INCREASED TO 20 MICROG/KG/MIN
     Route: 050

REACTIONS (3)
  - Cardiac arrest [Fatal]
  - Hypotension [Recovering/Resolving]
  - Bradycardia [Not Recovered/Not Resolved]
